FAERS Safety Report 24698176 (Version 2)
Quarter: 2024Q4

REPORT INFORMATION
  Report Type: Spontaneous
  Country: US (occurrence: US)
  Receive Date: 20241204
  Receipt Date: 20241211
  Transmission Date: 20250114
  Serious: No
  Sender: ELI LILLY AND COMPANY
  Company Number: US-ELI_LILLY_AND_COMPANY-US202411018625

PATIENT
  Age: 48 Year
  Sex: Female

DRUGS (4)
  1. TALTZ [Suspect]
     Active Substance: IXEKIZUMAB
     Indication: Psoriasis
     Dosage: 160 MG, OTHER (LOADING DOSE)
     Route: 058
     Dates: start: 202312
  2. TALTZ [Suspect]
     Active Substance: IXEKIZUMAB
     Dosage: 80 MG, WEEKLY (1/W)
     Route: 058
  3. TALTZ [Suspect]
     Active Substance: IXEKIZUMAB
     Dosage: 80 MG, OTHER (EVERY TWO WEEKS)
     Route: 058
  4. TALTZ [Suspect]
     Active Substance: IXEKIZUMAB
     Dosage: 80 MG, OTHER (EVERY FOUR WEEKS)
     Route: 058

REACTIONS (7)
  - Rash [Not Recovered/Not Resolved]
  - Inappropriate schedule of product administration [Unknown]
  - Psoriasis [Not Recovered/Not Resolved]
  - Therapeutic product effect decreased [Not Recovered/Not Resolved]
  - Overdose [Unknown]
  - Injection site erythema [Recovered/Resolved]
  - Injection site pruritus [Recovered/Resolved]
